FAERS Safety Report 24326502 (Version 2)
Quarter: 2024Q3

REPORT INFORMATION
  Report Type: Spontaneous
  Country: JP (occurrence: JP)
  Receive Date: 20240917
  Receipt Date: 20240927
  Transmission Date: 20241017
  Serious: Yes (Other)
  Sender: TEVA
  Company Number: JP-TEVA-VS-3242193

PATIENT
  Sex: Male

DRUGS (8)
  1. PREDNISOLONE [Suspect]
     Active Substance: PREDNISOLONE
     Indication: Haploinsufficiency of A20
     Route: 065
  2. PREDNISOLONE [Suspect]
     Active Substance: PREDNISOLONE
     Indication: Haploinsufficiency of A20
     Route: 065
  3. DEXAMETHASONE [Suspect]
     Active Substance: DEXAMETHASONE
     Indication: Haploinsufficiency of A20
     Dosage: LIPID EMULSION
     Route: 065
  4. GOLIMUMAB [Suspect]
     Active Substance: GOLIMUMAB
     Indication: Haploinsufficiency of A20
     Dosage: DOSE AT 9 YEARS OF AGE NOT STATED
     Route: 065
  5. ADALIMUMAB [Suspect]
     Active Substance: ADALIMUMAB
     Indication: Haploinsufficiency of A20
     Dosage: DOSE NOT STATED
     Route: 065
  6. METHOTREXATE [Suspect]
     Active Substance: METHOTREXATE
     Indication: Haploinsufficiency of A20
     Route: 065
  7. THALIDOMIDE [Suspect]
     Active Substance: THALIDOMIDE
     Indication: Haploinsufficiency of A20
     Route: 065
  8. THALIDOMIDE [Suspect]
     Active Substance: THALIDOMIDE
     Indication: Haploinsufficiency of A20
     Route: 065

REACTIONS (2)
  - Somnolence [Unknown]
  - Off label use [Unknown]
